FAERS Safety Report 23238737 (Version 1)
Quarter: 2023Q4

REPORT INFORMATION
  Report Type: Spontaneous
  Country: KR (occurrence: KR)
  Receive Date: 20231129
  Receipt Date: 20231129
  Transmission Date: 20240110
  Serious: Yes (Other)
  Sender: FDA-Public Use
  Company Number: KR-SA-SAC20231124000779

PATIENT
  Age: 83 Year
  Sex: Female

DRUGS (2)
  1. PLAVIX [Suspect]
     Active Substance: CLOPIDOGREL BISULFATE
     Indication: Gastrointestinal haemorrhage
     Dosage: 1 DF, QD
     Route: 048
     Dates: start: 20200310, end: 20200310
  2. ASPIRIN [Suspect]
     Active Substance: ASPIRIN
     Indication: Gastrointestinal haemorrhage
     Dosage: 1 DF, QD
     Route: 048
     Dates: start: 20200310, end: 20200310

REACTIONS (2)
  - Haematemesis [Unknown]
  - Product use in unapproved indication [Unknown]

NARRATIVE: CASE EVENT DATE: 20200310
